FAERS Safety Report 21212643 (Version 1)
Quarter: 2022Q3

REPORT INFORMATION
  Report Type: Spontaneous
  Country: US (occurrence: None)
  Receive Date: 20220814
  Receipt Date: 20220814
  Transmission Date: 20221027
  Serious: Yes (Other)
  Sender: FDA-Public Use
  Company Number: None

PATIENT
  Age: 51 Year
  Sex: Female
  Weight: 69.3 kg

DRUGS (1)
  1. PHENTERMINE [Suspect]
     Active Substance: PHENTERMINE
     Route: 048

REACTIONS (6)
  - Conversion disorder [None]
  - Alcohol interaction [None]
  - Abdominal pain upper [None]
  - Vomiting [None]
  - Tremor [None]
  - Confusional state [None]
